FAERS Safety Report 24215408 (Version 1)
Quarter: 2024Q3

REPORT INFORMATION
  Report Type: Report from Study
  Country: US (occurrence: US)
  Receive Date: 20240816
  Receipt Date: 20240816
  Transmission Date: 20241016
  Serious: No
  Sender: ACADIA PHARMACEUTICALS
  Company Number: US-ACADIA PHARMACEUTICALS INC.-ACA-2024-PIM-003906

PATIENT
  Age: 83 Year
  Sex: Male

DRUGS (16)
  1. NUPLAZID [Suspect]
     Active Substance: PIMAVANSERIN TARTRATE
     Indication: Parkinson^s disease
     Dosage: 10 MILLIGRAM, QD
     Route: 048
     Dates: start: 20240627, end: 20240701
  2. VITAMIN B COMPLEX [Concomitant]
     Active Substance: CYANOCOBALAMIN\DEXPANTHENOL\NIACINAMIDE\PYRIDOXINE HYDROCHLORIDE\RIBOFLAVIN 5^-PHOSPHATE SODIUM\THIA
  3. COENZYME Q10 [Concomitant]
     Active Substance: DIETARY SUPPLEMENT\UBIDECARENONE
     Dosage: 100 MILLIGRAM
  4. DOXYCYCLIN [DOXYCYCLINE HYDROCHLORIDE] [Concomitant]
     Dosage: 100 MILLIGRAM
  5. GOCOVRI [Concomitant]
     Active Substance: AMANTADINE
     Dosage: 137 MILLIGRAM
  6. LUPRON DEPOT [Concomitant]
     Active Substance: LEUPROLIDE ACETATE
     Dosage: 45 MILLIGRAM
  7. MAGNESIUM [Concomitant]
     Active Substance: MAGNESIUM
     Dosage: 250 MILLIGRAM
  8. MIDODRINE [Concomitant]
     Active Substance: MIDODRINE
     Dosage: 2.5 MG
  9. ONGENTYS [Concomitant]
     Active Substance: OPICAPONE
     Dosage: 50 MILLIGRAM
  10. RED YEAST PLUS [Concomitant]
     Dosage: 300 MILLIGRAM
  11. RYTARY [Concomitant]
     Active Substance: CARBIDOPA\LEVODOPA
     Dosage: 95 MILLIGRAM
  12. SINEMET [Concomitant]
     Active Substance: CARBIDOPA\LEVODOPA
     Dosage: 25-100 MG
  13. DIETARY SUPPLEMENT [Concomitant]
     Active Substance: DIETARY SUPPLEMENT
     Dosage: 1000 MILLIGRAM
  14. VITAMIN D3 [Concomitant]
     Active Substance: CHOLECALCIFEROL
     Dosage: 1000 UNIT
  15. XARELTO [Concomitant]
     Active Substance: RIVAROXABAN
     Dosage: 20 MILLIGRAM
  16. ZINC [Concomitant]
     Active Substance: ZINC
     Dosage: 100 MILLIGRAM

REACTIONS (6)
  - Mania [Recovered/Resolved]
  - Psychomotor hyperactivity [Recovered/Resolved]
  - Insomnia [Recovered/Resolved]
  - Lethargy [Recovered/Resolved]
  - Blood pressure decreased [Recovered/Resolved]
  - Hallucination [Recovered/Resolved]

NARRATIVE: CASE EVENT DATE: 20240701
